FAERS Safety Report 19139400 (Version 1)
Quarter: 2021Q2

REPORT INFORMATION
  Report Type: Spontaneous
  Country: GB (occurrence: GB)
  Receive Date: 20210415
  Receipt Date: 20210415
  Transmission Date: 20210717
  Serious: Yes (Other)
  Sender: FDA-Public Use
  Company Number: None

PATIENT
  Age: 37 Year
  Sex: Female

DRUGS (10)
  1. CYCLOSPORINE. [Suspect]
     Active Substance: CYCLOSPORINE
  2. DERMOVATE [Suspect]
     Active Substance: CLOBETASOL
  3. VISTAMETHASONE [Concomitant]
  4. OMALIZUMAB. [Concomitant]
     Active Substance: OMALIZUMAB
  5. PROTOPIC [Suspect]
     Active Substance: TACROLIMUS
  6. INHALERS [Concomitant]
     Active Substance: UNSPECIFIED INGREDIENT
  7. ANTIHISTAMINE [Concomitant]
     Active Substance: ANTIHISTAMINES NOS
  8. UVB [Concomitant]
  9. HERBAL TEAS [Concomitant]
     Active Substance: HERBALS
  10. HYDROCORTISONE. [Suspect]
     Active Substance: HYDROCORTISONE
     Indication: ECZEMA

REACTIONS (4)
  - Product prescribing issue [None]
  - Iatrogenic injury [None]
  - Steroid dependence [None]
  - Bedridden [None]

NARRATIVE: CASE EVENT DATE: 20210115
